FAERS Safety Report 10432382 (Version 2)
Quarter: 2014Q3

REPORT INFORMATION
  Report Type: Report from Study
  Country: JP (occurrence: JP)
  Receive Date: 20140905
  Receipt Date: 20140915
  Transmission Date: 20150326
  Serious: Yes (Death)
  Sender: FDA-Public Use
  Company Number: JP-JNJFOC-20140902645

PATIENT
  Age: 88 Year
  Sex: Male
  Weight: 53 kg

DRUGS (8)
  1. LUPRAC [Concomitant]
     Active Substance: TORSEMIDE
     Route: 048
     Dates: end: 20140527
  2. XARELTO [Suspect]
     Active Substance: RIVAROXABAN
     Indication: CEREBROVASCULAR ACCIDENT PROPHYLAXIS
     Dosage: CUMULATIVE DOSE - 3080
     Route: 048
     Dates: start: 20130611, end: 20140527
  3. XARELTO [Suspect]
     Active Substance: RIVAROXABAN
     Indication: THROMBOSIS PROPHYLAXIS
     Dosage: CUMULATIVE DOSE - 3080
     Route: 048
     Dates: start: 20130611, end: 20140527
  4. MEXITIL [Concomitant]
     Active Substance: MEXILETINE HYDROCHLORIDE
     Route: 048
     Dates: end: 20140527
  5. MEVALOTIN [Concomitant]
     Active Substance: PRAVASTATIN SODIUM
     Route: 048
     Dates: end: 20140527
  6. ZYLORIC [Concomitant]
     Active Substance: ALLOPURINOL
     Route: 048
     Dates: end: 20140527
  7. CALBLOCK [Concomitant]
     Active Substance: AZELNIDIPINE
     Route: 048
     Dates: end: 20140527
  8. XARELTO [Suspect]
     Active Substance: RIVAROXABAN
     Indication: ATRIAL FIBRILLATION
     Dosage: CUMULATIVE DOSE - 3080
     Route: 048
     Dates: start: 20130611, end: 20140527

REACTIONS (1)
  - Ischaemic cerebral infarction [Fatal]

NARRATIVE: CASE EVENT DATE: 20140414
